FAERS Safety Report 17230156 (Version 1)
Quarter: 2020Q1

REPORT INFORMATION
  Report Type: Spontaneous
  Country: IT (occurrence: IT)
  Receive Date: 20200103
  Receipt Date: 20200103
  Transmission Date: 20200409
  Serious: Yes (Other)
  Sender: FDA-Public Use
  Company Number: IT-ASTRAZENECA-2019SF92098

PATIENT
  Age: 71 Year
  Sex: Male

DRUGS (7)
  1. TOUJEO [Concomitant]
     Active Substance: INSULIN GLARGINE
  2. TORVAST [Concomitant]
     Active Substance: ATORVASTATIN
  3. METFORMIN [Concomitant]
     Active Substance: METFORMIN HYDROCHLORIDE
     Dosage: 250.0MG UNKNOWN
  4. ATENOLOL. [Concomitant]
     Active Substance: ATENOLOL
  5. QUETIAPINE. [Suspect]
     Active Substance: QUETIAPINE
     Indication: COGNITIVE DISORDER
     Route: 048
     Dates: start: 20181106
  6. ARIXTRA [Concomitant]
     Active Substance: FONDAPARINUX SODIUM
     Dosage: 2.5 MG/0.5 ML
  7. LYRICA [Concomitant]
     Active Substance: PREGABALIN

REACTIONS (3)
  - Sedation [Recovering/Resolving]
  - Agitation [Recovering/Resolving]
  - Altered state of consciousness [Recovering/Resolving]

NARRATIVE: CASE EVENT DATE: 20191106
